FAERS Safety Report 20176558 (Version 1)
Quarter: 2021Q4

REPORT INFORMATION
  Report Type: Spontaneous
  Country: US (occurrence: None)
  Receive Date: 20211210
  Receipt Date: 20211210
  Transmission Date: 20220303
  Serious: No
  Sender: FDA-Public Use
  Company Number: None

PATIENT
  Age: 47 Year
  Sex: Male
  Weight: 93.15 kg

DRUGS (1)
  1. METHADONE HYDROCHLORIDE [Suspect]
     Active Substance: METHADONE HYDROCHLORIDE
     Indication: Pain
     Dosage: OTHER QUANTITY : 1 TABLET(S);?FREQUENCY : 4 TIMES A DAY;?
     Route: 048
     Dates: start: 20040101

REACTIONS (10)
  - Product substitution issue [None]
  - Illness [None]
  - Diplopia [None]
  - Headache [None]
  - Balance disorder [None]
  - Dry eye [None]
  - Dizziness [None]
  - Inadequate analgesia [None]
  - Paraesthesia oral [None]
  - Suspected product quality issue [None]

NARRATIVE: CASE EVENT DATE: 20211207
